FAERS Safety Report 6253194-X (Version None)
Quarter: 2009Q3

REPORT INFORMATION
  Report Type: 
  Country: None (occurrence: None)
  Receive Date: 20090701
  Receipt Date: 20090626
  Transmission Date: 20100115
  Serious: Yes (Life-Threatening)
  Sender: FDA-Public Use
  Company Number: US-MERCK-0906USA02622

PATIENT
  Age: 62 Year
  Sex: Male

DRUGS (6)
  1. JANUVIA [Suspect]
     Indication: TYPE 2 DIABETES MELLITUS
     Route: 048
     Dates: start: 20090514, end: 20090101
  2. METFORMIN [Concomitant]
     Route: 065
  3. GLIPIZIDE [Concomitant]
     Route: 065
  4. HYZAAR [Concomitant]
     Route: 065
  5. ZETIA [Concomitant]
     Route: 065
  6. NORVASC [Concomitant]
     Route: 065

REACTIONS (5)
  - DYSPNOEA [None]
  - DYSURIA [None]
  - PRURITUS [None]
  - RASH [None]
  - RENAL FAILURE [None]
